FAERS Safety Report 9934950 (Version 2)
Quarter: 2014Q2

REPORT INFORMATION
  Report Type: Spontaneous
  Country: US (occurrence: US)
  Receive Date: 20140228
  Receipt Date: 20140505
  Transmission Date: 20141212
  Serious: Yes (Death, Life-Threatening, Hospitalization, Other)
  Sender: FDA-Public Use
  Company Number: US-MERCK-1402USA013690

PATIENT
  Sex: Female
  Weight: 106.58 kg

DRUGS (7)
  1. JANUVIA [Suspect]
     Indication: TYPE 2 DIABETES MELLITUS
     Dosage: 50 MG, QD
     Route: 048
     Dates: start: 20081224, end: 20100405
  2. JANUVIA [Suspect]
     Dosage: 100 MG, QD
     Route: 048
     Dates: start: 20110627, end: 20120710
  3. JANUMET [Suspect]
     Indication: TYPE 2 DIABETES MELLITUS
     Dosage: 50/1000 MG QD
     Route: 048
     Dates: start: 20080614, end: 20111121
  4. GLYBURIDE [Concomitant]
     Indication: TYPE 2 DIABETES MELLITUS
  5. METFORMIN [Concomitant]
     Indication: TYPE 2 DIABETES MELLITUS
  6. ACTOS [Concomitant]
     Indication: TYPE 2 DIABETES MELLITUS
  7. GLUCOVANCE [Concomitant]
     Indication: TYPE 2 DIABETES MELLITUS

REACTIONS (23)
  - Pancreatic carcinoma [Fatal]
  - Cerebrovascular accident [Unknown]
  - Cerebral infarction [Unknown]
  - Hepatic cancer [Unknown]
  - Breast cancer recurrent [Unknown]
  - Lung neoplasm malignant [Unknown]
  - Breast cancer [Unknown]
  - Convulsion [Unknown]
  - Malignant breast lump removal [Unknown]
  - Hepatitis [Unknown]
  - Transient ischaemic attack [Unknown]
  - Syncope [Unknown]
  - Cardiomegaly [Unknown]
  - Arteriosclerosis coronary artery [Unknown]
  - Spinal osteoarthritis [Unknown]
  - Osteoarthritis [Unknown]
  - Osteoarthritis [Unknown]
  - Coccidioidomycosis [Unknown]
  - Radiotherapy [Unknown]
  - Mass [Unknown]
  - Lymphadenopathy mediastinal [Unknown]
  - Medical device implantation [Unknown]
  - Diverticulum [Unknown]
